FAERS Safety Report 9795035 (Version 6)
Quarter: 2014Q1

REPORT INFORMATION
  Report Type: Spontaneous
  Country: IL (occurrence: IL)
  Receive Date: 20140102
  Receipt Date: 20140314
  Transmission Date: 20141002
  Serious: Yes (Other)
  Sender: FDA-Public Use
  Company Number: IL-009507513-1305ISR010344

PATIENT
  Age: 60 Year
  Sex: Female

DRUGS (10)
  1. VICTRELIS [Suspect]
     Indication: HEPATITIS C
     Dosage: 800 MG, TID
     Route: 048
     Dates: start: 20130409
  2. PEGASYS [Suspect]
     Indication: HEPATITIS C
     Dosage: INJECTS ON TUESDAYS
  3. COPEGUS [Suspect]
     Indication: HEPATITIS C
     Dosage: 1000 MG, UNK
     Dates: end: 2013
  4. COPEGUS [Suspect]
     Dosage: 600 MG, UNK
     Dates: start: 2013, end: 2013
  5. COPEGUS [Suspect]
     Dosage: 200 MG, UNK
     Dates: start: 2013
  6. VABEN [Concomitant]
  7. AERIUS [Concomitant]
     Indication: HYPERSENSITIVITY
     Route: 048
  8. ALPHAGAN [Concomitant]
     Indication: GLAUCOMA
     Route: 047
  9. PERCOCET [Concomitant]
     Indication: SYRINGOMYELIA
     Dosage: 20 MG, TID
  10. METFORMIN [Concomitant]

REACTIONS (58)
  - Neurosurgery [Unknown]
  - Food aversion [Not Recovered/Not Resolved]
  - Nail disorder [Unknown]
  - Onychoclasis [Unknown]
  - Eating disorder [Unknown]
  - Serum ferritin increased [Unknown]
  - Blood iron decreased [Unknown]
  - Bursitis [Unknown]
  - Injection site rash [Unknown]
  - Rash pruritic [Unknown]
  - Superficial vein prominence [Unknown]
  - Capillary disorder [Unknown]
  - Syringomyelia [Unknown]
  - Haematoma [Not Recovered/Not Resolved]
  - Haematoma [Unknown]
  - Hyperlipidaemia [Unknown]
  - Cervical spinal stenosis [Unknown]
  - Lumbar spinal stenosis [Unknown]
  - Pruritus allergic [Unknown]
  - Back disorder [Unknown]
  - Transfusion [Unknown]
  - Muscle disorder [Unknown]
  - Skin discolouration [Unknown]
  - Spinal column stenosis [Unknown]
  - Contusion [Unknown]
  - Abdominal pain [Not Recovered/Not Resolved]
  - Tongue oedema [Unknown]
  - Swelling face [Unknown]
  - Hyperaesthesia [Unknown]
  - Skin lesion [Unknown]
  - Face oedema [Unknown]
  - Erythema [Unknown]
  - Chest pain [Not Recovered/Not Resolved]
  - Neuralgia [Unknown]
  - Erythema [Unknown]
  - Stomatitis [Unknown]
  - Myalgia [Unknown]
  - Depression [Unknown]
  - Weight decreased [Not Recovered/Not Resolved]
  - Vomiting [Not Recovered/Not Resolved]
  - Haemoglobin decreased [Recovering/Resolving]
  - Haemoglobin decreased [Unknown]
  - Anaemia [Unknown]
  - Asthenia [Unknown]
  - Fatigue [Unknown]
  - Rash [Unknown]
  - Platelet count decreased [Unknown]
  - Insomnia [Unknown]
  - Thrombocytopenia [Unknown]
  - Haemoglobin decreased [Unknown]
  - Platelet count decreased [Unknown]
  - Nausea [Recovered/Resolved]
  - Decreased appetite [Not Recovered/Not Resolved]
  - Dysgeusia [Unknown]
  - Rash papular [Unknown]
  - Dysgeusia [Unknown]
  - Fatigue [Not Recovered/Not Resolved]
  - Haemoglobin decreased [Unknown]
